FAERS Safety Report 16626150 (Version 1)
Quarter: 2019Q3

REPORT INFORMATION
  Report Type: Spontaneous
  Country: GB (occurrence: GB)
  Receive Date: 20190724
  Receipt Date: 20190724
  Transmission Date: 20191004
  Serious: Yes (Other)
  Sender: FDA-Public Use
  Company Number: GB-MYLANLABS-2019M1068126

PATIENT
  Age: 59 Year
  Sex: Male
  Weight: 82 kg

DRUGS (4)
  1. KIVEXA [Concomitant]
     Active Substance: ABACAVIR SULFATE\LAMIVUDINE
     Indication: HIV ANTIBODY POSITIVE
     Dosage: TAKEN FOR OVER 10 YEARS.
  2. NEVIRAPINE. [Concomitant]
     Active Substance: NEVIRAPINE
     Dosage: TAKEN FOR OVER 10 YEARS.
  3. ATORVASTATIN [Concomitant]
     Active Substance: ATORVASTATIN
     Dosage: WITHDRAWN.
     Dates: start: 201807
  4. ABACAVIR SULFATE/LAMIVUDINE [Suspect]
     Active Substance: ABACAVIR SULFATE\LAMIVUDINE
     Indication: HIV ANTIBODY POSITIVE
     Dosage: 600MG/300MG
     Route: 048
     Dates: start: 20170201, end: 20190121

REACTIONS (3)
  - Product substitution issue [Unknown]
  - Dermatitis acneiform [Not Recovered/Not Resolved]
  - Alopecia [Not Recovered/Not Resolved]

NARRATIVE: CASE EVENT DATE: 20170201
